FAERS Safety Report 5675759-6 (Version None)
Quarter: 2008Q1

REPORT INFORMATION
  Report Type: 
  Country: None (occurrence: None)
  Receive Date: 20080318
  Receipt Date: 20080312
  Transmission Date: 20080703
  Serious: Yes (Other)
  Sender: FDA-Public Use
  Company Number: CHPA2008US04516

PATIENT
  Age: 24 Year
  Sex: Female

DRUGS (1)
  1. EXCEDRIN EXTRA STRENGTH (NCH) (CAFFEINE CITRATE, ACETYLSALYLIC ACID, A [Suspect]
     Indication: HEADACHE
     Dosage: 2DF, ONCE/SINGLE, ORAL
     Route: 048
     Dates: start: 20080311, end: 20080311

REACTIONS (1)
  - HALLUCINATION [None]
